FAERS Safety Report 13266537 (Version 1)
Quarter: 2017Q1

REPORT INFORMATION
  Report Type: Spontaneous
  Country: US (occurrence: US)
  Receive Date: 20170223
  Receipt Date: 20170223
  Transmission Date: 20170428
  Serious: No
  Sender: FDA-Public Use
  Company Number: US-BAUSCH-BL-2016-019697

PATIENT
  Age: 52 Year
  Sex: Male
  Weight: 106.69 kg

DRUGS (1)
  1. SODIUM SULFACETAMIDE [Suspect]
     Active Substance: SULFACETAMIDE SODIUM
     Indication: CONJUNCTIVITIS
     Dosage: IN RIGHT EYE
     Route: 047
     Dates: start: 20160814, end: 20160815

REACTIONS (5)
  - Product quality issue [Unknown]
  - Eye pain [Not Recovered/Not Resolved]
  - Lacrimation increased [Not Recovered/Not Resolved]
  - Eye irritation [Not Recovered/Not Resolved]
  - Conjunctivitis [Not Recovered/Not Resolved]

NARRATIVE: CASE EVENT DATE: 20160814
